FAERS Safety Report 20998137 (Version 3)
Quarter: 2022Q3

REPORT INFORMATION
  Report Type: Spontaneous
  Country: IN (occurrence: IN)
  Receive Date: 20220623
  Receipt Date: 20220829
  Transmission Date: 20221027
  Serious: Yes (Death, Hospitalization, Other)
  Sender: FDA-Public Use
  Company Number: IN-PFIZER INC-PV202200007354

PATIENT
  Age: 45 Year
  Sex: Female

DRUGS (1)
  1. PALBOCICLIB [Suspect]
     Active Substance: PALBOCICLIB
     Dosage: 125 MG, 1X/DAY
     Route: 048
     Dates: start: 20220210, end: 20220817

REACTIONS (6)
  - Death [Fatal]
  - General physical health deterioration [Unknown]
  - Pain [Unknown]
  - Vomiting [Unknown]
  - Wound [Unknown]
  - Wound complication [Unknown]

NARRATIVE: CASE EVENT DATE: 20220101
